FAERS Safety Report 18746181 (Version 3)
Quarter: 2021Q2

REPORT INFORMATION
  Report Type: Report from Study
  Country: US (occurrence: US)
  Receive Date: 20210115
  Receipt Date: 20210427
  Transmission Date: 20210717
  Serious: Yes (Other)
  Sender: FDA-Public Use
  Company Number: US-INSMED, INC.-US-INS-20-02380

PATIENT
  Age: 84 Year
  Sex: Female

DRUGS (7)
  1. ARIKAYCE [Suspect]
     Active Substance: AMIKACIN
     Indication: MYCOBACTERIUM AVIUM COMPLEX INFECTION
     Dosage: 590 MILLIGRAM
     Route: 055
     Dates: start: 20201217
  2. ARIKAYCE [Suspect]
     Active Substance: AMIKACIN
     Dosage: 590 MILLIGRAM, QD
     Route: 055
     Dates: end: 20210111
  3. WARFARIN [Suspect]
     Active Substance: WARFARIN
     Indication: PRODUCT USED FOR UNKNOWN INDICATION
  4. ALBUTEROL. [Suspect]
     Active Substance: ALBUTEROL
     Indication: PRODUCT USED FOR UNKNOWN INDICATION
  5. BREO ELLIPTA [Suspect]
     Active Substance: FLUTICASONE FUROATE\VILANTEROL TRIFENATATE
     Indication: PRODUCT USED FOR UNKNOWN INDICATION
  6. ARIKAYCE [Suspect]
     Active Substance: AMIKACIN
     Dosage: 590 MILLIGRAM
     Route: 055
  7. ACETYLCYSTEINE. [Suspect]
     Active Substance: ACETYLCYSTEINE
     Indication: PRODUCT USED FOR UNKNOWN INDICATION

REACTIONS (22)
  - Adverse drug reaction [Unknown]
  - Dysgeusia [Recovering/Resolving]
  - Glossodynia [Recovering/Resolving]
  - Stress [Unknown]
  - Dysphonia [Unknown]
  - Off label use [Unknown]
  - Depression [Not Recovered/Not Resolved]
  - Balance disorder [Unknown]
  - Vocal cord disorder [Unknown]
  - Depressed mood [Not Recovered/Not Resolved]
  - Bronchospasm [Unknown]
  - Product packaging difficult to open [Unknown]
  - Product dose omission issue [Unknown]
  - Pruritus [Unknown]
  - Aphonia [Unknown]
  - Fatigue [Unknown]
  - Dizziness [Unknown]
  - Eye irritation [Not Recovered/Not Resolved]
  - Vision blurred [Unknown]
  - Cough [Not Recovered/Not Resolved]
  - Vertigo [Unknown]
  - Exposure via mucosa [Not Recovered/Not Resolved]

NARRATIVE: CASE EVENT DATE: 202012
